FAERS Safety Report 17982193 (Version 2)
Quarter: 2020Q3

REPORT INFORMATION
  Report Type: Spontaneous
  Country: RU (occurrence: RU)
  Receive Date: 20200706
  Receipt Date: 20200715
  Transmission Date: 20201103
  Serious: Yes (Other)
  Sender: FDA-Public Use
  Company Number: RU-EMD SERONO-9171742

PATIENT
  Sex: Female

DRUGS (1)
  1. GONAL?F [Suspect]
     Active Substance: FOLLITROPIN
     Indication: IN VITRO FERTILISATION
     Route: 058
     Dates: start: 201305, end: 201305

REACTIONS (5)
  - Artificial menopause [Unknown]
  - Failed in vitro fertilisation [Unknown]
  - Wrong technique in product usage process [Unknown]
  - Ovarian hyperstimulation syndrome [Recovered/Resolved]
  - Decreased embryo viability [Unknown]

NARRATIVE: CASE EVENT DATE: 2013
